FAERS Safety Report 16884925 (Version 1)
Quarter: 2019Q4

REPORT INFORMATION
  Report Type: Spontaneous
  Country: US (occurrence: US)
  Receive Date: 20191004
  Receipt Date: 20191004
  Transmission Date: 20200122
  Serious: No
  Sender: FDA-Public Use
  Company Number: US-PFIZER INC-2019430014

PATIENT
  Age: 50 Year
  Sex: Female

DRUGS (3)
  1. METRONIDAZOLE. [Suspect]
     Active Substance: METRONIDAZOLE
     Dosage: UNK
  2. NAPROXEN SODIUM. [Suspect]
     Active Substance: NAPROXEN SODIUM
     Dosage: UNK
  3. CEFDINIR. [Suspect]
     Active Substance: CEFDINIR
     Dosage: UNK

REACTIONS (1)
  - Drug hypersensitivity [Unknown]
